FAERS Safety Report 15780932 (Version 2)
Quarter: 2019Q1

REPORT INFORMATION
  Report Type: Spontaneous
  Country: CN (occurrence: CN)
  Receive Date: 20190102
  Receipt Date: 20190104
  Transmission Date: 20190417
  Serious: Yes (Other)
  Sender: FDA-Public Use
  Company Number: CN-BAYER-2019-000442

PATIENT
  Sex: Female

DRUGS (2)
  1. BAYASPIRIN 100 MG [Suspect]
     Active Substance: ASPIRIN
     Dosage: 50 MG
     Route: 048
  2. BAYASPIRIN 100 MG [Suspect]
     Active Substance: ASPIRIN
     Dosage: 100 UNK
     Route: 048

REACTIONS (3)
  - Ecchymosis [None]
  - Blood pressure increased [None]
  - Wrong technique in product usage process [None]

NARRATIVE: CASE EVENT DATE: 20190102
